FAERS Safety Report 9011468 (Version 1)
Quarter: 2013Q1

REPORT INFORMATION
  Report Type: Spontaneous
  Country: DE (occurrence: DE)
  Receive Date: 20130108
  Receipt Date: 20130108
  Transmission Date: 20140127
  Serious: Yes (Other)
  Sender: FDA-Public Use
  Company Number: DE-UCBSA-074494

PATIENT
  Sex: Female

DRUGS (1)
  1. LEGANTO [Suspect]
     Dosage: PATCH

REACTIONS (3)
  - Arrhythmia [Unknown]
  - Hyperhidrosis [Unknown]
  - Flushing [Unknown]
